FAERS Safety Report 9946847 (Version 1)
Quarter: 2014Q1

REPORT INFORMATION
  Report Type: Report from Study
  Country: US (occurrence: US)
  Receive Date: 20140303
  Receipt Date: 20140303
  Transmission Date: 20141002
  Serious: No
  Sender: FDA-Public Use
  Company Number: US-ABBVIE-13P-163-1060284-00

PATIENT
  Age: 67 Year
  Sex: Male

DRUGS (6)
  1. HUMIRA [Suspect]
     Indication: PSORIASIS
     Dates: start: 201301
  2. TRILIPIX [Concomitant]
     Indication: BLOOD CHOLESTEROL
     Route: 048
  3. ASPIRIN [Concomitant]
     Indication: THROMBOSIS PROPHYLAXIS
     Route: 048
  4. LUTEIN [Concomitant]
     Indication: MACULAR DEGENERATION
     Route: 048
  5. EYE INJECTIONS [Concomitant]
     Indication: AGE-RELATED MACULAR DEGENERATION
  6. MULTIVITAMINS [Concomitant]
     Indication: PROPHYLAXIS
     Dosage: DAILY
     Route: 048

REACTIONS (1)
  - Onychomycosis [Not Recovered/Not Resolved]
